FAERS Safety Report 6809475-1 (Version None)
Quarter: 2010Q2

REPORT INFORMATION
  Report Type: 
  Country: None (occurrence: None)
  Receive Date: 20100625
  Receipt Date: 20090521
  Transmission Date: 20101027
  Serious: Yes (Life-Threatening, Hospitalization)
  Sender: FDA-Public Use
  Company Number: 200905AGG00878

PATIENT
  Age: 66 Year
  Sex: Female

DRUGS (6)
  1. AGGRASTAT (AGGRASTAT (TIROFIBAN HCL) ) 17 ML [Suspect]
     Dosage: INTRAVENOUS DRIP
     Route: 041
  2. CORVASAL /00547101/ [Concomitant]
  3. ASPIRIN [Concomitant]
  4. BUMEX [Concomitant]
  5. HEPARIN [Concomitant]
  6. SERETIDE /01420901/ [Concomitant]

REACTIONS (7)
  - CHEST PAIN [None]
  - CHILLS [None]
  - PETECHIAE [None]
  - PLATELET COUNT DECREASED [None]
  - PYREXIA [None]
  - TACHYCARDIA [None]
  - UNEVALUABLE EVENT [None]
